FAERS Safety Report 16539215 (Version 2)
Quarter: 2019Q3

REPORT INFORMATION
  Report Type: Spontaneous
  Country: CA (occurrence: CA)
  Receive Date: 20190708
  Receipt Date: 20190830
  Transmission Date: 20191004
  Serious: Yes (Other)
  Sender: FDA-Public Use
  Company Number: CA-PFIZER INC-2019280919

PATIENT
  Age: 23 Year
  Sex: Female

DRUGS (14)
  1. PREDNISONE. [Concomitant]
     Active Substance: PREDNISONE
     Dosage: 40 MG, 1X/DAY (OD) FOR TWO WEEKS
  2. PREDNISONE. [Concomitant]
     Active Substance: PREDNISONE
     Dosage: 40 MG, ONCE A DAY FOR TWO WEEKS AND TAPER IT DOWN EVERY FIVE DAYS
     Dates: start: 201905
  3. PREDNISONE. [Concomitant]
     Active Substance: PREDNISONE
     Dosage: 45 MG, ONCE A DAY
     Dates: start: 20190203
  4. PREDNISONE. [Concomitant]
     Active Substance: PREDNISONE
     Dosage: 30 MG, ONCE A DAY
     Dates: start: 20190225
  5. PREDNISONE. [Concomitant]
     Active Substance: PREDNISONE
     Dosage: 35 MG, 1X/DAY (OD) TAPERING DOSE
  6. XELJANZ [Concomitant]
     Active Substance: TOFACITINIB CITRATE
     Indication: COLITIS ULCERATIVE
     Dosage: 10 MG, TWICE A DAY
     Route: 048
     Dates: start: 201905
  7. XELJANZ [Concomitant]
     Active Substance: TOFACITINIB CITRATE
     Dosage: 10 MG, TWICE A DAY
     Route: 048
     Dates: start: 20190513, end: 2019
  8. SOLU-MEDROL [Suspect]
     Active Substance: METHYLPREDNISOLONE SODIUM SUCCINATE
     Dosage: 20 MG THREE TIMES DAILY
     Route: 042
     Dates: start: 201901, end: 2019
  9. PREDNISONE. [Concomitant]
     Active Substance: PREDNISONE
     Dosage: 20 MG, ONCE A DAY FOR A WEEK
     Dates: start: 20181227, end: 20190103
  10. PREDNISONE. [Concomitant]
     Active Substance: PREDNISONE
     Dosage: 50 MG, ONCE A DAY
     Dates: start: 20190201
  11. PREDNISONE. [Concomitant]
     Active Substance: PREDNISONE
     Dosage: UNK
     Dates: end: 2013
  12. PREDNISONE. [Concomitant]
     Active Substance: PREDNISONE
     Dosage: 40 MG, ONCE A DAY FOR TWO WEEKS AND TAPER IT DOWN EVERY FIVE DAYS
     Dates: start: 20190108, end: 20190122
  13. PREDNISONE. [Concomitant]
     Active Substance: PREDNISONE
     Dosage: TAPERING
     Dates: end: 201904
  14. FERAMAX [Concomitant]
     Active Substance: IRON\POLYSACCHARIDES
     Dosage: UNKNOWN DOSE, ONCE A DAY
     Dates: start: 2019

REACTIONS (17)
  - Condition aggravated [Unknown]
  - Serum ferritin decreased [Unknown]
  - C-reactive protein increased [Unknown]
  - Normocytic anaemia [Not Recovered/Not Resolved]
  - Neutropenia [Unknown]
  - Haematocrit decreased [Unknown]
  - Neutrophil count decreased [Unknown]
  - White blood cell count decreased [Unknown]
  - Mean cell haemoglobin concentration decreased [Unknown]
  - Haemorrhage [Unknown]
  - Mean cell haemoglobin decreased [Unknown]
  - Red cell distribution width increased [Unknown]
  - Red blood cell count decreased [Unknown]
  - Haemoglobin decreased [Unknown]
  - Mean cell volume decreased [Unknown]
  - Monocyte count decreased [Unknown]
  - Viral infection [Unknown]

NARRATIVE: CASE EVENT DATE: 20190123
